FAERS Safety Report 10486715 (Version 5)
Quarter: 2015Q1

REPORT INFORMATION
  Report Type: Report from Study
  Country: US (occurrence: US)
  Receive Date: 20141001
  Receipt Date: 20150302
  Transmission Date: 20150720
  Serious: Yes (Hospitalization)
  Sender: FDA-Public Use
  Company Number: PHEH2014US019203

PATIENT
  Sex: Female

DRUGS (8)
  1. SANDIMMUNE [Suspect]
     Active Substance: CYCLOSPORINE
     Indication: LIVER TRANSPLANT
     Dosage: 100 MG (ONCE DAILY)
     Route: 048
  2. CYMBALTA [Concomitant]
     Active Substance: DULOXETINE HYDROCHLORIDE
     Indication: PRODUCT USED FOR UNKNOWN INDICATION
     Route: 065
  3. INTERFERON [Suspect]
     Active Substance: INTERFERON
     Indication: HEPATITIS C
     Route: 065
  4. SANDIMMUNE [Suspect]
     Active Substance: CYCLOSPORINE
     Indication: COMPLICATIONS OF TRANSPLANTED LIVER
     Dosage: 25 MG, BID
     Route: 048
  5. SANDIMMUNE [Suspect]
     Active Substance: CYCLOSPORINE
     Indication: COMPLICATIONS OF TRANSPLANTED KIDNEY
     Dosage: 100 MG (ONCE DAILY)
     Route: 048
  6. SANDIMMUNE [Suspect]
     Active Substance: CYCLOSPORINE
     Indication: RENAL TRANSPLANT
     Dosage: 25 MG, BID
     Route: 048
  7. PEGASYS [Concomitant]
     Active Substance: PEGINTERFERON ALFA-2A
     Indication: PRODUCT USED FOR UNKNOWN INDICATION
     Route: 065
  8. RIBAVIRIN. [Suspect]
     Active Substance: RIBAVIRIN
     Indication: HEPATITIS C
     Route: 065

REACTIONS (14)
  - Alopecia [Unknown]
  - Depressed mood [Unknown]
  - Haemoglobin decreased [Unknown]
  - Weight decreased [Unknown]
  - Speech disorder [Unknown]
  - Malaise [Unknown]
  - Gait disturbance [Unknown]
  - Asthenia [Unknown]
  - Bone pain [Unknown]
  - Decreased appetite [Unknown]
  - Vomiting [Unknown]
  - Headache [Unknown]
  - Sepsis [Unknown]
  - Fall [Unknown]
